FAERS Safety Report 19998274 (Version 1)
Quarter: 2021Q4

REPORT INFORMATION
  Report Type: Spontaneous
  Country: CN (occurrence: CN)
  Receive Date: 20211026
  Receipt Date: 20211026
  Transmission Date: 20220303
  Serious: Yes (Other)
  Sender: FDA-Public Use
  Company Number: CN-PFIZER INC-202101368760

PATIENT
  Age: 22 Year
  Sex: Male
  Weight: 80 kg

DRUGS (6)
  1. METHYLPREDNISOLONE SODIUM SUCCINATE [Suspect]
     Active Substance: METHYLPREDNISOLONE SODIUM SUCCINATE
     Indication: Urticaria
     Dosage: 40 MG, 1X/DAY
     Route: 041
     Dates: start: 20210928, end: 20210928
  2. DEXAMETHASONE SODIUM PHOSPHATE [Suspect]
     Active Substance: DEXAMETHASONE SODIUM PHOSPHATE
     Indication: Urticaria
     Dosage: 10 MG, 1X/DAY
     Route: 041
     Dates: start: 20210924, end: 20210925
  3. DEXAMETHASONE SODIUM PHOSPHATE [Suspect]
     Active Substance: DEXAMETHASONE SODIUM PHOSPHATE
     Dosage: 15 MG, 1X/DAY
     Route: 041
     Dates: start: 20210926, end: 20210927
  4. DESONIDE [Concomitant]
     Active Substance: DESONIDE
     Indication: Urticaria
     Dosage: 1 G, 2X/DAY
     Dates: start: 20210928, end: 20211004
  5. EPINASTINE HYDROCHLORIDE [Concomitant]
     Active Substance: EPINASTINE HYDROCHLORIDE
     Indication: Urticaria
     Dosage: 20 MG, 1X/DAY
     Route: 048
     Dates: start: 20210924, end: 20210930
  6. DEXTROSE [Concomitant]
     Active Substance: DEXTROSE
     Indication: Urticaria
     Dosage: 100 ML, 1X/DAY
     Route: 041
     Dates: start: 20210924, end: 20210928

REACTIONS (1)
  - Abdominal pain [Recovered/Resolved]

NARRATIVE: CASE EVENT DATE: 20210929
